FAERS Safety Report 7730475-1 (Version None)
Quarter: 2011Q3

REPORT INFORMATION
  Report Type: 
  Country: None (occurrence: None)
  Receive Date: 20110906
  Receipt Date: 20110824
  Transmission Date: 20111222
  Serious: Yes (Death)
  Sender: FDA-Public Use
  Company Number: DE-CELGENEUS-062-50794-11082819

PATIENT
  Age: 64 Year
  Sex: Female
  Weight: 83 kg

DRUGS (2)
  1. VIDAZA [Suspect]
     Indication: CHRONIC MYELOMONOCYTIC LEUKAEMIA
     Dosage: 142 MILLIGRAM
     Route: 058
     Dates: start: 20110124, end: 20110125
  2. MCP-DROPS [Concomitant]
     Dosage: 40 DROPS
     Route: 048
     Dates: start: 20110124, end: 20110124

REACTIONS (1)
  - CARDIAC ARREST [None]
